FAERS Safety Report 8985605 (Version 1)
Quarter: 2012Q4

REPORT INFORMATION
  Report Type: 
  Country: IL (occurrence: IL)
  Receive Date: 20121226
  Receipt Date: 20121226
  Transmission Date: 20130627
  Serious: Yes (Other)
  Sender: FDA-Public Use
  Company Number: IL-SANOFI-AVENTIS-2012SA094283

PATIENT
  Age: 84 Year
  Sex: Male

DRUGS (3)
  1. LANTUS [Suspect]
     Indication: TYPE 2 DIABETES MELLITUS
     Dosage: therapy was started at reduced dose
     Route: 058
  2. METFORMIN [Concomitant]
     Indication: TYPE 2 DIABETES MELLITUS
  3. GASTRO [Concomitant]

REACTIONS (4)
  - Syncope [Recovered/Resolved]
  - Diarrhoea [Unknown]
  - Presyncope [Unknown]
  - Asthenia [Unknown]
